FAERS Safety Report 20775262 (Version 4)
Quarter: 2022Q2

REPORT INFORMATION
  Report Type: Report from Study
  Country: US (occurrence: US)
  Receive Date: 20220502
  Receipt Date: 20220629
  Transmission Date: 20220720
  Serious: Yes (Death, Hospitalization)
  Sender: FDA-Public Use
  Company Number: US-OTSUKA-2022_023222

PATIENT
  Age: 81 Year
  Sex: Male

DRUGS (5)
  1. CEDAZURIDINE\DECITABINE [Suspect]
     Active Substance: CEDAZURIDINE\DECITABINE
     Indication: Pancytopenia
     Dosage: 1 DF (35-100MG), QD ON DAYS 1-5 OF EACH 28-DAY CYCLE
     Route: 048
     Dates: start: 20220328
  2. NORVASC [Concomitant]
     Active Substance: AMLODIPINE BESYLATE
     Indication: Product used for unknown indication
     Dosage: UNK
     Route: 065
  3. METOPROLOL [Concomitant]
     Active Substance: METOPROLOL
     Indication: Product used for unknown indication
     Dosage: 200 MG, BID (200 MG IN THE MORNING AND 200 MG IN THE EVENING)
     Route: 065
  4. DILTIAZEM [Concomitant]
     Active Substance: DILTIAZEM
     Indication: Product used for unknown indication
     Dosage: UNK
     Route: 065
  5. ISOSORBIDE [Concomitant]
     Active Substance: ISOSORBIDE
     Indication: Product used for unknown indication
     Dosage: UNK
     Route: 065

REACTIONS (6)
  - Death [Fatal]
  - Transfusion [Unknown]
  - Platelet transfusion [Unknown]
  - Product use in unapproved indication [Unknown]
  - Product use complaint [Unknown]
  - Product quality issue [Unknown]

NARRATIVE: CASE EVENT DATE: 20220401
